FAERS Safety Report 10258819 (Version 1)
Quarter: 2014Q2

REPORT INFORMATION
  Report Type: Spontaneous
  Country: US (occurrence: None)
  Receive Date: 20140624
  Receipt Date: 20140624
  Transmission Date: 20141212
  Serious: No
  Sender: FDA-Public Use
  Company Number: None

PATIENT
  Age: 36 Year
  Sex: Female
  Weight: 62.3 kg

DRUGS (1)
  1. ALFA 2 INTERFERON 2B (INTRON-A) [Suspect]
     Dosage: 169 MILLION IU
     Dates: end: 20140620

REACTIONS (1)
  - Hypophosphataemia [None]
